FAERS Safety Report 5672828-1 (Version None)
Quarter: 2008Q1

REPORT INFORMATION
  Report Type: 
  Country: None (occurrence: None)
  Receive Date: 20080319
  Receipt Date: 20080317
  Transmission Date: 20080703
  Serious: Yes (Hospitalization)
  Sender: FDA-Public Use
  Company Number: A0492406A

PATIENT
  Age: 55 Year
  Sex: Male
  Weight: 125.5 kg

DRUGS (5)
  1. AVANDIA [Suspect]
     Dates: start: 20000322, end: 20010610
  2. INSULIN [Concomitant]
  3. PRECOSE [Concomitant]
  4. RELAFEN [Concomitant]
  5. PRAVACHOL [Concomitant]

REACTIONS (4)
  - CARDIAC FAILURE CONGESTIVE [None]
  - HEART INJURY [None]
  - INJURY [None]
  - OEDEMA PERIPHERAL [None]
